FAERS Safety Report 20699545 (Version 2)
Quarter: 2022Q2

REPORT INFORMATION
  Report Type: Spontaneous
  Country: US (occurrence: US)
  Receive Date: 20220412
  Receipt Date: 20220414
  Transmission Date: 20220721
  Serious: No
  Sender: FDA-Public Use
  Company Number: US-GSKCCFUS-Case-01342578_AE-77899

PATIENT
  Age: 49 Year
  Sex: Female

DRUGS (1)
  1. BENLYSTA [Suspect]
     Active Substance: BELIMUMAB
     Indication: Product used for unknown indication
     Dosage: UNK 200MG/ML X4
     Route: 058
     Dates: start: 20220405

REACTIONS (5)
  - Injection site warmth [Unknown]
  - Accidental exposure to product [Unknown]
  - Injection site pain [Unknown]
  - Exposure via skin contact [Unknown]
  - Product complaint [Unknown]

NARRATIVE: CASE EVENT DATE: 20220405
